FAERS Safety Report 14711368 (Version 5)
Quarter: 2018Q3

REPORT INFORMATION
  Report Type: Spontaneous
  Country: US (occurrence: US)
  Receive Date: 20180403
  Receipt Date: 20180803
  Transmission Date: 20181010
  Serious: Yes (Hospitalization, Other)
  Sender: FDA-Public Use
  Company Number: US-PFIZER INC-2018119233

PATIENT
  Age: 67 Year
  Sex: Male

DRUGS (2)
  1. SUTENT [Suspect]
     Active Substance: SUNITINIB MALATE
     Indication: RENAL CANCER STAGE IV
     Dosage: 37.5 MG, CYCLIC (TAKE 1 CAPSULE BY MOUTH DAILY FOR 14 DAYS ON, 7 DAYS OFF )
     Route: 048
     Dates: start: 201711, end: 201712
  2. SUTENT [Suspect]
     Active Substance: SUNITINIB MALATE
     Indication: METASTASES TO LUNG
     Dosage: 37.5 MG, CYCLIC(TAKE 1 CAPSULE BY MOUTH FOR 14 DAYS ON, 7 DAYS OFF)
     Route: 048
     Dates: start: 20171114

REACTIONS (5)
  - Movement disorder [Unknown]
  - Diarrhoea [Not Recovered/Not Resolved]
  - Cellulitis [Recovered/Resolved]
  - Lymphoedema [Unknown]
  - Pain [Unknown]
